FAERS Safety Report 9006950 (Version 1)
Quarter: 2013Q1

REPORT INFORMATION
  Report Type: Spontaneous
  Country: US (occurrence: US)
  Receive Date: 20130110
  Receipt Date: 20130110
  Transmission Date: 20140127
  Serious: No
  Sender: FDA-Public Use
  Company Number: US-PFIZER INC-2013011453

PATIENT
  Age: 23 Year
  Sex: Male
  Weight: 77.1 kg

DRUGS (1)
  1. ADVIL [Suspect]
     Indication: HEADACHE
     Dosage: UNK
     Route: 048
     Dates: end: 20130108

REACTIONS (6)
  - Expired drug administered [Unknown]
  - Anxiety [Recovered/Resolved]
  - Nasopharyngitis [Recovered/Resolved]
  - Impaired driving ability [Unknown]
  - Fear [Unknown]
  - Feeling abnormal [Unknown]
